FAERS Safety Report 6007875-3 (Version None)
Quarter: 2008Q4

REPORT INFORMATION
  Report Type: 
  Country: None (occurrence: None)
  Receive Date: 20081217
  Receipt Date: 20080707
  Transmission Date: 20090506
  Serious: No
  Sender: FDA-Public Use
  Company Number: US-ASTRAZENECA-2008UW13632

PATIENT
  Age: 75 Year
  Sex: Female

DRUGS (3)
  1. CRESTOR [Suspect]
     Route: 048
  2. DIOVAN [Concomitant]
  3. SYNTHROID [Concomitant]

REACTIONS (3)
  - DRY MOUTH [None]
  - GLOSSODYNIA [None]
  - ORAL DISCOMFORT [None]
